FAERS Safety Report 13424790 (Version 9)
Quarter: 2018Q1

REPORT INFORMATION
  Report Type: Report from Study
  Country: US (occurrence: US)
  Receive Date: 20170410
  Receipt Date: 20180213
  Transmission Date: 20180508
  Serious: Yes (Hospitalization)
  Sender: FDA-Public Use
  Company Number: US-ACTELION-A-NJ2017-152198

PATIENT
  Age: 66 Year
  Sex: Female
  Weight: 64.4 kg

DRUGS (9)
  1. UPTRAVI [Suspect]
     Active Substance: SELEXIPAG
     Dosage: 600 MCG, BID
     Route: 048
     Dates: start: 20170221
  2. UPTRAVI [Suspect]
     Active Substance: SELEXIPAG
     Dosage: 400 MCG, BID
     Route: 048
  3. WARFARIN [Concomitant]
     Active Substance: WARFARIN
  4. LETAIRIS [Concomitant]
     Active Substance: AMBRISENTAN
  5. UPTRAVI [Suspect]
     Active Substance: SELEXIPAG
     Indication: PULMONARY ARTERIAL HYPERTENSION
     Dosage: 1000 MCG, BID
     Route: 048
     Dates: end: 20170617
  6. ADEMPAS [Concomitant]
     Active Substance: RIOCIGUAT
  7. NIFEDIPINE. [Concomitant]
     Active Substance: NIFEDIPINE
  8. UPTRAVI [Suspect]
     Active Substance: SELEXIPAG
     Dosage: 200 MCG, BID
     Route: 048
  9. TYVASO [Concomitant]
     Active Substance: TREPROSTINIL
     Dosage: 4 DF, QID
     Route: 055
     Dates: start: 201709

REACTIONS (15)
  - Acute kidney injury [Unknown]
  - Listless [Unknown]
  - Oedema [Unknown]
  - Renal failure [Recovered/Resolved with Sequelae]
  - Dehydration [Unknown]
  - Weight increased [Unknown]
  - Dyspnoea exertional [Unknown]
  - Laboratory test abnormal [Unknown]
  - Disease progression [Unknown]
  - Fatigue [Unknown]
  - Malaise [Unknown]
  - Hypotension [Unknown]
  - Dyspnoea [Unknown]
  - Fluid overload [Unknown]
  - Right ventricular failure [Unknown]

NARRATIVE: CASE EVENT DATE: 201705
